FAERS Safety Report 5189213-1 (Version None)
Quarter: 2006Q4

REPORT INFORMATION
  Report Type: 
  Country: None (occurrence: None)
  Receive Date: 20061218
  Receipt Date: 20061206
  Transmission Date: 20070319
  Serious: Yes (Hospitalization)
  Sender: FDA-Public Use
  Company Number: 163-21880-06101074

PATIENT
  Age: 74 Year
  Sex: Male

DRUGS (3)
  1. REVLIMID [Suspect]
     Indication: MULTIPLE MYELOMA
     Dosage: 15 MG, 1 IN 1 D, ORAL
     Route: 048
     Dates: start: 20060801, end: 20060901
  2. DECADRON [Suspect]
     Indication: MULTIPLE MYELOMA
  3. SEPTRA [Concomitant]

REACTIONS (13)
  - ANAEMIA [None]
  - CARDIOMEGALY [None]
  - DYSPNOEA [None]
  - FLUID OVERLOAD [None]
  - FLUSHING [None]
  - LEUKOPENIA [None]
  - OXYGEN SATURATION DECREASED [None]
  - PARAPROTEINAEMIA [None]
  - PYREXIA [None]
  - RESPIRATORY RATE INCREASED [None]
  - TACHYCARDIA [None]
  - THROMBOCYTOPENIA [None]
  - TRANSFUSION REACTION [None]
